FAERS Safety Report 5828306-X (Version None)
Quarter: 2008Q3

REPORT INFORMATION
  Report Type: 
  Country: None (occurrence: None)
  Receive Date: 20080729
  Receipt Date: 20080729
  Transmission Date: 20090109
  Serious: Yes (Other)
  Sender: FDA-Public Use
  Company Number: None

PATIENT
  Sex: Female
  Weight: 77.1115 kg

DRUGS (5)
  1. CHANTIX [Suspect]
     Indication: SMOKING CESSATION THERAPY
     Dosage: CHANTIX 0.5 BID PO THEN
     Route: 048
     Dates: start: 20080317, end: 20080526
  2. CHANTIX [Suspect]
     Dosage: CHANTIX 1.0 BID PO
     Route: 048
  3. LISINOPRIL [Concomitant]
  4. FLUOXETINE [Concomitant]
  5. CHLORTHALIDONE [Concomitant]

REACTIONS (8)
  - ALANINE AMINOTRANSFERASE INCREASED [None]
  - ASPARTATE AMINOTRANSFERASE INCREASED [None]
  - BLOOD GLUCOSE INCREASED [None]
  - BLOOD POTASSIUM DECREASED [None]
  - GLYCOSYLATED HAEMOGLOBIN INCREASED [None]
  - HYPERPHAGIA [None]
  - POLYDIPSIA [None]
  - POLYURIA [None]
